FAERS Safety Report 6843652-9 (Version None)
Quarter: 2010Q2

REPORT INFORMATION
  Report Type: 
  Country: None (occurrence: None)
  Receive Date: 20100629
  Receipt Date: 20100405
  Transmission Date: 20101027
  Serious: No
  Sender: FDA-Public Use
  Company Number: US-WYE-H14428010

PATIENT

DRUGS (1)
  1. PRISTIQ [Suspect]
     Dosage: 100 MG 1X PER 1 DAY, ORAL; 50 MG 1X PER 1 DAY, ORAL 3 WK CONTINUES
     Route: 048

REACTIONS (1)
  - RASH [None]
